FAERS Safety Report 11272097 (Version 1)
Quarter: 2015Q3

REPORT INFORMATION
  Report Type: Report from Study
  Country: FR (occurrence: FR)
  Receive Date: 20150715
  Receipt Date: 20150715
  Transmission Date: 20151125
  Serious: Yes (Death, Life-Threatening, Other)
  Sender: FDA-Public Use
  Company Number: PHHY2014FR132179

PATIENT
  Age: 80 Year
  Sex: Male
  Weight: 68 kg

DRUGS (3)
  1. ICL670A [Suspect]
     Active Substance: DEFERASIROX
     Indication: REFRACTORY CYTOPENIA WITH MULTILINEAGE DYSPLASIA
     Dosage: 1250 MG, QD
     Route: 048
     Dates: start: 20140424, end: 20140508
  2. ICL670A [Suspect]
     Active Substance: DEFERASIROX
     Indication: MYELODYSPLASTIC SYNDROME
     Dosage: UNK
     Route: 048
     Dates: start: 20140710
  3. ICL670A [Suspect]
     Active Substance: DEFERASIROX
     Dosage: 2000 MG, UNK
     Route: 065
     Dates: start: 20141014

REACTIONS (8)
  - Sepsis [Fatal]
  - Disease progression [Fatal]
  - Myelodysplastic syndrome [Fatal]
  - Neutrophil count decreased [Unknown]
  - Platelet count decreased [Unknown]
  - White blood cell count decreased [Unknown]
  - Rash [Recovered/Resolved]
  - Monocyte count decreased [Unknown]

NARRATIVE: CASE EVENT DATE: 20140426
